FAERS Safety Report 10192690 (Version 1)
Quarter: 2014Q2

REPORT INFORMATION
  Report Type: Spontaneous
  Country: US (occurrence: US)
  Receive Date: 20140523
  Receipt Date: 20140523
  Transmission Date: 20141212
  Serious: No
  Sender: FDA-Public Use
  Company Number: US-ASTRAZENECA-2013SE85176

PATIENT
  Age: 41 Year
  Sex: Male
  Weight: 74.8 kg

DRUGS (2)
  1. PULMICORT FLEXHALER [Suspect]
     Indication: ASTHMA
     Dosage: 180 MCG - 2 PUFFS TWO TIMES A DAY
     Route: 055
     Dates: start: 20131108
  2. VENTOLIN [Concomitant]
     Indication: ASTHMA
     Dosage: UNKNOWN PRN
     Route: 055

REACTIONS (2)
  - Headache [Recovered/Resolved]
  - Circumstance or information capable of leading to medication error [Unknown]
